FAERS Safety Report 21406560 (Version 1)
Quarter: 2022Q4

REPORT INFORMATION
  Report Type: Spontaneous
  Country: US (occurrence: US)
  Receive Date: 20221004
  Receipt Date: 20221004
  Transmission Date: 20230113
  Serious: Yes (Hospitalization, Other)
  Sender: FDA-Public Use
  Company Number: US-009507513-1302USA009119

PATIENT
  Sex: Female

DRUGS (10)
  1. FOSAMAX [Suspect]
     Active Substance: ALENDRONATE SODIUM
     Indication: Osteoporosis
     Dosage: 10 MG, QD
     Route: 048
     Dates: start: 1998, end: 200711
  2. FOSAMAX [Suspect]
     Active Substance: ALENDRONATE SODIUM
     Dosage: 10 MILLIGRAM, QD
     Route: 048
     Dates: start: 199804
  3. FOSAMAX [Suspect]
     Active Substance: ALENDRONATE SODIUM
     Dosage: 70 MILLIGRAM, QW
     Route: 048
     Dates: start: 200106
  4. FOSAMAX [Suspect]
     Active Substance: ALENDRONATE SODIUM
     Dosage: 10 MILLIGRAM, QD
     Route: 048
     Dates: start: 200111
  5. FORTEO [Suspect]
     Active Substance: TERIPARATIDE
     Indication: Osteoporosis
     Dosage: DAILY INJECTIONS
     Dates: start: 200712, end: 200802
  6. LIPITOR [Suspect]
     Active Substance: ATORVASTATIN CALCIUM
     Dosage: UNK
  7. PRAVACHOL [Suspect]
     Active Substance: PRAVASTATIN SODIUM
     Dosage: 40 MILLIGRAM
     Dates: start: 200503
  8. EVISTA [Suspect]
     Active Substance: RALOXIFENE HYDROCHLORIDE
     Dosage: 60G DAILY
     Dates: start: 200604
  9. VITAMINS NOS [Concomitant]
     Active Substance: VITAMINS
     Dosage: 1 DF, QD
     Dates: start: 1990
  10. CALCIUM;VITAMIN D NOS [Concomitant]
     Dosage: 630MG + 500IU 1-2X/DAY
     Dates: start: 1998

REACTIONS (19)
  - Femur fracture [Recovering/Resolving]
  - Radius fracture [Recovering/Resolving]
  - Fracture delayed union [Unknown]
  - Fracture nonunion [Unknown]
  - Medical device removal [Unknown]
  - Hand fracture [Unknown]
  - Hand fracture [Unknown]
  - Blood cholesterol increased [Unknown]
  - Back pain [Not Recovered/Not Resolved]
  - Urticaria [Recovered/Resolved]
  - Drug ineffective [Unknown]
  - Eustachian tube dysfunction [Unknown]
  - Anxiety [Unknown]
  - Musculoskeletal pain [Unknown]
  - Tinnitus [Unknown]
  - Dry eye [Unknown]
  - Drug intolerance [Unknown]
  - Arthralgia [Unknown]
  - Fall [Unknown]

NARRATIVE: CASE EVENT DATE: 19980101
